FAERS Safety Report 5358210-5 (Version None)
Quarter: 2007Q2

REPORT INFORMATION
  Report Type: 
  Country: None (occurrence: None)
  Receive Date: 20070530
  Receipt Date: 20061027
  Transmission Date: 20071010
  Serious: Yes (Other)
  Sender: FDA-Public Use
  Company Number: US200603004718

PATIENT
  Age: 52 Year
  Sex: Female
  Weight: 52.2 kg

DRUGS (4)
  1. ZYPREXA [Suspect]
     Indication: DEPRESSION
     Dosage: 15 MG
     Dates: start: 19960601, end: 19980801
  2. CELEXA [Concomitant]
  3. BUSPAR [Concomitant]
  4. AMITRIPTYLINE HCL [Concomitant]

REACTIONS (2)
  - DIABETES MELLITUS [None]
  - PANCREATITIS [None]
